FAERS Safety Report 9928265 (Version 1)
Quarter: 2014Q1

REPORT INFORMATION
  Report Type: Spontaneous
  Country: US (occurrence: None)
  Receive Date: 20140224
  Receipt Date: 20140224
  Transmission Date: 20141002
  Serious: Yes (Death)
  Sender: FDA-Public Use
  Company Number: NL01PV14.35240

PATIENT
  Age: 50 Year
  Sex: Female

DRUGS (6)
  1. UNKNOWN (ZOLPIDEM) TABLET [Suspect]
     Route: 048
  2. CLONIDINE (CLONIDINE) [Suspect]
     Route: 048
  3. LABETALOL (LABETALOL) [Suspect]
     Route: 048
  4. LISINOPRIL (LISINOPRIL) [Suspect]
     Route: 048
  5. IRON [Suspect]
     Route: 048
  6. CITALOPRAM (CITALOPRAM) [Suspect]
     Route: 048

REACTIONS (2)
  - Completed suicide [None]
  - Exposure via ingestion [None]
